FAERS Safety Report 9859240 (Version 3)
Quarter: 2014Q2

REPORT INFORMATION
  Report Type: Spontaneous
  Country: IT (occurrence: IT)
  Receive Date: 20140131
  Receipt Date: 20140411
  Transmission Date: 20141212
  Serious: Yes (Hospitalization)
  Sender: FDA-Public Use
  Company Number: IT-BRISTOL-MYERS SQUIBB COMPANY-20077590

PATIENT
  Age: 77 Year
  Sex: Male

DRUGS (10)
  1. COUMADIN TABS 5 MG [Suspect]
     Indication: ATRIAL FIBRILLATION
     Dosage: 1DF=1UNIT?INT 10JAN14?RESTARTED 14-JAN-2014, RESTARTED ON 01APR2014
     Route: 048
     Dates: start: 20070101
  2. PARACETAMOL [Interacting]
     Indication: PAIN IN EXTREMITY
     Dosage: LAST DOSE 09-JAN-2014
     Route: 048
     Dates: start: 20131230
  3. ALLOPURINOL [Concomitant]
     Route: 048
  4. TAMSULOSIN HCL [Concomitant]
     Route: 048
  5. SYNFLEX [Concomitant]
     Indication: PAIN IN EXTREMITY
     Dates: start: 20131230, end: 20140109
  6. COTAREG [Concomitant]
     Dosage: 1DF=COTAREG TABS DOSAGE/0.5/UNIT
  7. TENORMIN [Concomitant]
     Dosage: DOSAGE/0.5/UNIT/ORALLY
     Route: 048
  8. FUROSEMIDE [Concomitant]
     Dosage: DOSAGE/2/UNIT/ORALLY
     Route: 048
  9. LUVION [Concomitant]
     Dosage: TABS;DOSAGE/1/UNIT/ORALLY
  10. PLENDIL [Concomitant]
     Dosage: TABS;DOSAGE/1/UNIT/ORALLY
     Route: 048

REACTIONS (4)
  - Anaemia [Recovered/Resolved]
  - Gingival bleeding [Recovered/Resolved]
  - Haemoptysis [Recovered/Resolved]
  - Drug interaction [Unknown]
